FAERS Safety Report 6987600-X (Version None)
Quarter: 2010Q3

REPORT INFORMATION
  Report Type: 
  Country: None (occurrence: None)
  Receive Date: 20100916
  Receipt Date: 20100910
  Transmission Date: 20110219
  Serious: Yes (Life-Threatening, Hospitalization, Other)
  Sender: FDA-Public Use
  Company Number: PHHY2010JP47543

PATIENT
  Sex: Male

DRUGS (8)
  1. NEORAL [Suspect]
     Indication: RHEUMATOID LUNG
     Dosage: 200 MG, QD
     Route: 048
     Dates: start: 20100101, end: 20100623
  2. MAGNESIUM OXIDE [Concomitant]
     Dosage: 0.5 G, UNK
     Route: 048
     Dates: start: 20100101
  3. PREDNISOLONE [Concomitant]
     Dosage: 8 MG, UNK
     Route: 048
     Dates: start: 20100101
  4. GLIMICRON [Concomitant]
     Dosage: 20 MG, UNK
     Dates: start: 20100501
  5. RADEN [Concomitant]
     Dosage: 300 MG
     Route: 048
     Dates: start: 20100101
  6. ADOAIR [Concomitant]
     Dosage: 500 MG
     Dates: start: 20100101
  7. SPIRIVA [Concomitant]
     Dosage: 18 UG
     Dates: start: 20100101
  8. LANTUS [Concomitant]
     Dosage: 16IU
     Route: 058
     Dates: start: 20100501

REACTIONS (4)
  - CYTOMEGALOVIRUS INFECTION [None]
  - IMMUNOGLOBULINS DECREASED [None]
  - OPPORTUNISTIC INFECTION [None]
  - PYREXIA [None]
